FAERS Safety Report 14384011 (Version 1)
Quarter: 2018Q1

REPORT INFORMATION
  Report Type: Spontaneous
  Country: US (occurrence: US)
  Receive Date: 20180115
  Receipt Date: 20180115
  Transmission Date: 20180509
  Serious: No
  Sender: FDA-Public Use
  Company Number: US-PFIZER INC-2018008745

PATIENT
  Age: 50 Year
  Sex: Male
  Weight: 90.72 kg

DRUGS (4)
  1. SPIRONOLACTONE. [Concomitant]
     Active Substance: SPIRONOLACTONE
     Indication: HORMONE REPLACEMENT THERAPY
     Dosage: 100 MG, 2X/DAY
     Dates: start: 201706
  2. CHANTIX [Suspect]
     Active Substance: VARENICLINE TARTRATE
     Indication: SMOKING CESSATION THERAPY
     Dosage: 2 DF DAILY (2MG DAILY)
     Route: 048
     Dates: start: 20171101, end: 20180101
  3. ESTRADIOL. [Suspect]
     Active Substance: ESTRADIOL
     Indication: HORMONE REPLACEMENT THERAPY
     Dosage: UNK
     Route: 030
     Dates: start: 201712
  4. ESTRADIOL. [Suspect]
     Active Substance: ESTRADIOL
     Dosage: 1 MG, 1X/DAY
     Route: 048
     Dates: start: 20171219

REACTIONS (5)
  - Disturbance in attention [Unknown]
  - Palpitations [Recovering/Resolving]
  - Dyspnoea exertional [Recovering/Resolving]
  - Mania [Recovering/Resolving]
  - Nausea [Recovered/Resolved]

NARRATIVE: CASE EVENT DATE: 20180102
